FAERS Safety Report 11135061 (Version 1)
Quarter: 2015Q2

REPORT INFORMATION
  Report Type: Spontaneous
  Country: US (occurrence: US)
  Receive Date: 20150525
  Receipt Date: 20150525
  Transmission Date: 20150821
  Serious: Yes (Other)
  Sender: FDA-Public Use
  Company Number: US-HOSPIRA-2868324

PATIENT
  Age: 68 Year

DRUGS (7)
  1. DOXORUBICIN [Suspect]
     Active Substance: DOXORUBICIN
     Indication: CHRONIC LYMPHOCYTIC LEUKAEMIA
     Dosage: DAY 1 OF 21 DAY CYCLE
     Route: 042
     Dates: start: 20131014, end: 20131104
  2. CYCLOPHOSPHAMIDE. [Suspect]
     Active Substance: CYCLOPHOSPHAMIDE
     Indication: CHRONIC LYMPHOCYTIC LEUKAEMIA
     Dosage: D1 OF 21 DAY CYCLE
     Route: 042
     Dates: start: 20131014, end: 20131014
  3. DOXORUBICIN [Suspect]
     Active Substance: DOXORUBICIN
     Indication: CHRONIC LYMPHOCYTIC LEUKAEMIA
     Dosage: DAY 1 OF 21 DAY CYCLE
     Route: 042
     Dates: start: 20131014, end: 20131014
  4. VINCRISTINE SULFATE. [Suspect]
     Active Substance: VINCRISTINE SULFATE
     Indication: CHRONIC LYMPHOCYTIC LEUKAEMIA
     Dosage: DAY 1 OF 21 DAY CYCLE
     Route: 042
     Dates: start: 20131014, end: 20131125
  5. CYCLOPHOSPHAMIDE. [Suspect]
     Active Substance: CYCLOPHOSPHAMIDE
     Indication: CHRONIC LYMPHOCYTIC LEUKAEMIA
     Dosage: D1 OF 21 DAY CYCLE
     Route: 042
     Dates: start: 20131014, end: 20131104
  6. PREDNISONE. [Suspect]
     Active Substance: PREDNISONE
     Indication: CHRONIC LYMPHOCYTIC LEUKAEMIA
     Dosage: DAYS 1-5 OF 21 DAY CYCLE
     Route: 048
     Dates: start: 20131014, end: 20131129
  7. RITUXIMAB [Suspect]
     Active Substance: RITUXIMAB
     Indication: CHRONIC LYMPHOCYTIC LEUKAEMIA
     Dosage: DAY 1 OF 21 DAY CYCLE
     Route: 042
     Dates: start: 20131014, end: 20131125

REACTIONS (2)
  - Febrile neutropenia [Unknown]
  - Febrile neutropenia [Unknown]

NARRATIVE: CASE EVENT DATE: 20131020
